FAERS Safety Report 14350296 (Version 1)
Quarter: 2018Q1

REPORT INFORMATION
  Report Type: Spontaneous
  Country: US (occurrence: US)
  Receive Date: 20180103
  Receipt Date: 20180103
  Transmission Date: 20180509
  Serious: Yes (Hospitalization)
  Sender: FDA-Public Use
  Company Number: None

PATIENT
  Sex: Female
  Weight: 67.5 kg

DRUGS (7)
  1. CLONAZEPAM. [Concomitant]
     Active Substance: CLONAZEPAM
  2. LEVOFLOXACIN. [Suspect]
     Active Substance: LEVOFLOXACIN
     Indication: SINUSITIS
     Dosage: ?          QUANTITY:5 TABLET(S);?
     Route: 048
     Dates: start: 20171211, end: 20171215
  3. EFFEXOR [Concomitant]
     Active Substance: VENLAFAXINE HYDROCHLORIDE
  4. TYLENOL EXTRA STRENGTH [Concomitant]
     Active Substance: ACETAMINOPHEN
  5. UKONE TUMERIC [Concomitant]
  6. OSTEO- BI-FLEX [Concomitant]
  7. OMEPRAZOLE. [Concomitant]
     Active Substance: OMEPRAZOLE

REACTIONS (13)
  - Fatigue [None]
  - Oesophageal candidiasis [None]
  - Renal pain [None]
  - Cough [None]
  - Pain [None]
  - Oral candidiasis [None]
  - Hiatus hernia [None]
  - Stress [None]
  - Impulsive behaviour [None]
  - Insomnia [None]
  - Arthralgia [None]
  - Oesophageal spasm [None]
  - Musculoskeletal pain [None]

NARRATIVE: CASE EVENT DATE: 20171219
